FAERS Safety Report 16814193 (Version 1)
Quarter: 2019Q3

REPORT INFORMATION
  Report Type: Spontaneous
  Country: US (occurrence: US)
  Receive Date: 20190725
  Receipt Date: 20190725
  Transmission Date: 20191005
  Serious: Yes (Other)
  Sender: FDA-Public Use
  Company Number: None

PATIENT
  Age: 57 Year
  Sex: Male
  Weight: 73.48 kg

DRUGS (1)
  1. MESALAMINE 1-2GM [Suspect]
     Active Substance: MESALAMINE
     Indication: COLITIS ULCERATIVE
     Dosage: ?          OTHER DOSE:1-2 GRAMS;?
     Route: 048
     Dates: start: 20190701

REACTIONS (5)
  - Fatigue [None]
  - Frequent bowel movements [None]
  - Abdominal pain [None]
  - Nausea [None]
  - Product substitution issue [None]

NARRATIVE: CASE EVENT DATE: 20190705
